FAERS Safety Report 16089998 (Version 2)
Quarter: 2019Q2

REPORT INFORMATION
  Report Type: Spontaneous
  Country: US (occurrence: US)
  Receive Date: 20190319
  Receipt Date: 20190419
  Transmission Date: 20190711
  Serious: No
  Sender: FDA-Public Use
  Company Number: US-SA-2019SA067612

PATIENT
  Age: 66 Year
  Sex: Female

DRUGS (4)
  1. DUPIXENT [Suspect]
     Active Substance: DUPILUMAB
     Indication: DERMATITIS
     Dosage: 300 MG, QOW
     Route: 058
     Dates: start: 2016
  2. BENLYSTA [Concomitant]
     Active Substance: BELIMUMAB
     Dosage: UNK, QM
  3. DUPIXENT [Suspect]
     Active Substance: DUPILUMAB
     Indication: SYSTEMIC LUPUS ERYTHEMATOSUS
     Dosage: 600 MG, 1X
     Route: 058
     Dates: start: 2016
  4. RITUXAN [Concomitant]
     Active Substance: RITUXIMAB

REACTIONS (3)
  - Off label use [Unknown]
  - Underdose [Unknown]
  - Device issue [Unknown]
